FAERS Safety Report 24199420 (Version 1)
Quarter: 2024Q3

REPORT INFORMATION
  Report Type: Spontaneous
  Country: US (occurrence: US)
  Receive Date: 20240812
  Receipt Date: 20240812
  Transmission Date: 20241017
  Serious: No
  Sender: ACCORD
  Company Number: US-Accord-387326

PATIENT
  Sex: Female
  Weight: 63.5 kg

DRUGS (7)
  1. EPLERENONE [Suspect]
     Active Substance: EPLERENONE
     Indication: Hypertension
     Dosage: 12.5 MG EVERY OTHER DAY, THEN 12.5MG DAILY, THEN 25MG EVERY DAY?FOR THE LAST 3 WEEKS
  2. AMLODIPINE [Concomitant]
     Active Substance: AMLODIPINE BESYLATE
     Dosage: 5MG
  3. LIVALO [Concomitant]
     Active Substance: PITAVASTATIN CALCIUM
     Dosage: 1 MG 2X WEEKLY
  4. LORAZEPAM [Concomitant]
     Active Substance: LORAZEPAM
  5. MIRTAZAPINE [Concomitant]
     Active Substance: MIRTAZAPINE
  6. SYNTHROID [Concomitant]
     Active Substance: LEVOTHYROXINE SODIUM
     Dosage: 100 MCG
  7. VITAMIN B12 [Concomitant]
     Active Substance: CYANOCOBALAMIN

REACTIONS (10)
  - Tinnitus [Unknown]
  - Toothache [Unknown]
  - Confusional state [Unknown]
  - Headache [Unknown]
  - Alopecia [Unknown]
  - Onychoclasis [Unknown]
  - Therapeutic response unexpected [Unknown]
  - Pre-existing condition improved [Unknown]
  - Pollakiuria [Unknown]
  - Brain fog [Unknown]
